FAERS Safety Report 17401379 (Version 3)
Quarter: 2020Q1

REPORT INFORMATION
  Report Type: Report from Study
  Country: US (occurrence: US)
  Receive Date: 20200211
  Receipt Date: 20200220
  Transmission Date: 20200409
  Serious: Yes (Other)
  Sender: FDA-Public Use
  Company Number: NVSC2020US035212

PATIENT
  Sex: Female

DRUGS (1)
  1. GILENYA [Suspect]
     Active Substance: FINGOLIMOD HYDROCHLORIDE
     Indication: PRODUCT USED FOR UNKNOWN INDICATION
     Dosage: UNK
     Route: 065

REACTIONS (10)
  - Reading disorder [Unknown]
  - Weight decreased [Unknown]
  - Gait disturbance [Unknown]
  - Migraine [Unknown]
  - Hunger [Unknown]
  - Speech disorder [Unknown]
  - Central nervous system lesion [Unknown]
  - Immunodeficiency [Unknown]
  - Panic attack [Unknown]
  - Decreased appetite [Unknown]
